FAERS Safety Report 4345006-6 (Version None)
Quarter: 2004Q2

REPORT INFORMATION
  Report Type: 
  Country: None (occurrence: None)
  Receive Date: 20040421
  Receipt Date: 20040421
  Transmission Date: 20050107
  Serious: Yes (Hospitalization)
  Sender: FDA-Public Use
  Company Number: None

PATIENT
  Age: 79 Year
  Sex: Male
  Weight: 91.3 kg

DRUGS (7)
  1. ASPIRIN [Suspect]
     Indication: MYOCARDIAL INFARCTION
     Dosage: 81MG QD PO
     Route: 048
     Dates: start: 20040322, end: 20040409
  2. ASPIRIN [Suspect]
     Indication: PROPHYLAXIS
     Dosage: 81MG QD PO
     Route: 048
     Dates: start: 20040322, end: 20040409
  3. MAGNESIUM OXIDE [Concomitant]
  4. CITALOPRAM HYDROBROMIDE [Concomitant]
  5. GLYBURIDE [Concomitant]
  6. METFORMIN HCL [Concomitant]
  7. CALCIUM 600MG/VITAMIN D [Concomitant]

REACTIONS (1)
  - GASTROINTESTINAL HAEMORRHAGE [None]
